FAERS Safety Report 5125804-1 (Version None)
Quarter: 2006Q4

REPORT INFORMATION
  Report Type: 
  Country: None (occurrence: None)
  Receive Date: 20061010
  Receipt Date: 20061010
  Transmission Date: 20070319
  Serious: Yes (Other)
  Sender: FDA-Public Use
  Company Number: None

PATIENT
  Age: 51 Year
  Sex: Male
  Weight: 79.3795 kg

DRUGS (4)
  1. ACCOLATE [Suspect]
     Indication: ASTHMA
     Dosage: 1 TABLET TWICE DAILY PO
     Route: 048
     Dates: start: 20060720, end: 20060908
  2. ACCOLATE [Suspect]
     Indication: NASAL POLYPS
     Dosage: 1 TABLET TWICE DAILY PO
     Route: 048
     Dates: start: 20060720, end: 20060908
  3. ACCOLATE [Suspect]
     Indication: RHINITIS
     Dosage: 1 TABLET TWICE DAILY PO
     Route: 048
     Dates: start: 20060720, end: 20060908
  4. ADVAIR HFA [Concomitant]

REACTIONS (3)
  - ABDOMINAL PAIN UPPER [None]
  - DECREASED APPETITE [None]
  - WEIGHT DECREASED [None]
